FAERS Safety Report 6112109-5 (Version None)
Quarter: 2009Q1

REPORT INFORMATION
  Report Type: 
  Country: None (occurrence: None)
  Receive Date: 20090310
  Receipt Date: 20090224
  Transmission Date: 20090719
  Serious: Yes (Hospitalization)
  Sender: FDA-Public Use
  Company Number: 238148J08USA

PATIENT
  Age: 54 Year
  Sex: Female
  Weight: 54 kg

DRUGS (8)
  1. REBIF [Suspect]
     Indication: MULTIPLE SCLEROSIS
     Dosage: 44 MCG, 3 IN 1 WEEKS, SUBCUTANEOUS
     Route: 058
     Dates: start: 20050706, end: 20080717
  2. REBIF [Suspect]
     Indication: MULTIPLE SCLEROSIS
     Dosage: 44 MCG, 3 IN 1 WEEKS, SUBCUTANEOUS
     Route: 058
     Dates: start: 20080722, end: 20080901
  3. REBIF [Suspect]
     Indication: MULTIPLE SCLEROSIS
     Dosage: 44 MCG, 3 IN 1 WEEKS, SUBCUTANEOUS
     Route: 058
     Dates: start: 20080901, end: 20080901
  4. REBIF [Suspect]
     Indication: MULTIPLE SCLEROSIS
     Dosage: 44 MCG, 3 IN 1 WEEKS, SUBCUTANEOUS
     Route: 058
     Dates: start: 20080901, end: 20090101
  5. NEURONTIN [Concomitant]
  6. DITROPAN [Concomitant]
  7. AMITRIPTYLINE HYDROCHLORIDE [Concomitant]
  8. ADDERALL (OBETROL) [Concomitant]

REACTIONS (5)
  - DISEASE PROGRESSION [None]
  - FALL [None]
  - INTESTINAL OBSTRUCTION [None]
  - PULMONARY THROMBOSIS [None]
  - SPLENIC RUPTURE [None]
